FAERS Safety Report 22055023 (Version 1)
Quarter: 2023Q1

REPORT INFORMATION
  Report Type: Spontaneous
  Country: FR (occurrence: FR)
  Receive Date: 20230302
  Receipt Date: 20230302
  Transmission Date: 20230418
  Serious: Yes (Life-Threatening)
  Sender: FDA-Public Use
  Company Number: None

PATIENT
  Age: 45 Year
  Sex: Female

DRUGS (1)
  1. MIRENA [Suspect]
     Active Substance: LEVONORGESTREL
     Indication: Hormonal contraception
     Dosage: 20?G/DAY
     Route: 015
     Dates: start: 200806, end: 20230104

REACTIONS (1)
  - Breast cancer female [Recovering/Resolving]

NARRATIVE: CASE EVENT DATE: 20221201
